FAERS Safety Report 10345686 (Version 1)
Quarter: 2014Q3

REPORT INFORMATION
  Report Type: Spontaneous
  Country: DK (occurrence: FR)
  Receive Date: 20140728
  Receipt Date: 20140728
  Transmission Date: 20150326
  Serious: Yes (Hospitalization)
  Sender: FDA-Public Use
  Company Number: FR-FRI-1000069334

PATIENT
  Age: 68 Year
  Sex: Male

DRUGS (5)
  1. ACTISKENAN [Suspect]
     Active Substance: MORPHINE SULFATE
     Dosage: OVERDOSE OF 280 MG
     Route: 048
     Dates: start: 20140119, end: 20140119
  2. LAROXYL [Suspect]
     Active Substance: AMITRIPTYLINE
     Dosage: OVERDOSE OF 1.325 GRAM ONCE
     Route: 048
     Dates: start: 20140119, end: 20140119
  3. ESCITALOPRAM [Suspect]
     Active Substance: ESCITALOPRAM OXALATE
     Dosage: OVERDOSE OF 840 MG ONCE
     Route: 048
     Dates: start: 20140119, end: 20140119
  4. LAROXYL [Suspect]
     Active Substance: AMITRIPTYLINE
     Dosage: OVERDOSE OF 1 GRAM ONCE
     Route: 048
     Dates: start: 20140119, end: 20140119
  5. ALPRAZOLAM. [Suspect]
     Active Substance: ALPRAZOLAM
     Dosage: OVERDOSE OF 60 MG ONCE
     Route: 048
     Dates: start: 20140119, end: 20140119

REACTIONS (5)
  - Pneumonia aspiration [Recovered/Resolved]
  - Suicide attempt [Recovered/Resolved]
  - Toxic encephalopathy [Recovered/Resolved]
  - Renal failure [Recovered/Resolved]
  - Overdose [Recovered/Resolved]

NARRATIVE: CASE EVENT DATE: 20140119
